FAERS Safety Report 16490852 (Version 5)
Quarter: 2019Q4

REPORT INFORMATION
  Report Type: Spontaneous
  Country: JP (occurrence: JP)
  Receive Date: 20190628
  Receipt Date: 20191211
  Transmission Date: 20200122
  Serious: Yes (Death, Hospitalization, Other)
  Sender: FDA-Public Use
  Company Number: JP-BRISTOL-MYERS SQUIBB COMPANY-BMS-2019-062592

PATIENT
  Age: 67 Year
  Sex: Male
  Weight: 44.5 kg

DRUGS (2)
  1. SUTENT [Suspect]
     Active Substance: SUNITINIB MALATE
     Indication: METASTATIC RENAL CELL CARCINOMA
     Route: 065
  2. OPDIVO [Suspect]
     Active Substance: NIVOLUMAB
     Indication: METASTATIC RENAL CELL CARCINOMA
     Dosage: 240 MILLIGRAM
     Route: 041
     Dates: start: 20190612, end: 20190612

REACTIONS (6)
  - Pneumothorax [Fatal]
  - Retinal detachment [Unknown]
  - Metastases to central nervous system [Unknown]
  - Vogt-Koyanagi-Harada disease [Recovering/Resolving]
  - Brain oedema [Unknown]
  - Fall [Unknown]

NARRATIVE: CASE EVENT DATE: 20190618
